FAERS Safety Report 22522142 (Version 3)
Quarter: 2023Q2

REPORT INFORMATION
  Report Type: Spontaneous
  Country: NL (occurrence: NL)
  Receive Date: 20230605
  Receipt Date: 20230608
  Transmission Date: 20230722
  Serious: Yes (Death, Other)
  Sender: FDA-Public Use
  Company Number: NL-STADA-277548

PATIENT
  Age: 61 Year
  Sex: Female

DRUGS (8)
  1. CYCLOPHOSPHAMIDE [Suspect]
     Active Substance: CYCLOPHOSPHAMIDE
     Indication: Chronic myelomonocytic leukaemia
     Dosage: RECEIVED FLAMSA-RIC REGIMEN; HIGH DOSE
     Route: 065
  2. ACYCLOVIR [Suspect]
     Active Substance: ACYCLOVIR
     Indication: Herpes simplex
     Dosage: UNK
     Route: 065
  3. ACYCLOVIR [Suspect]
     Active Substance: ACYCLOVIR
     Indication: Oral herpes
  4. CYTARABINE [Suspect]
     Active Substance: CYTARABINE
     Indication: Chronic myelomonocytic leukaemia
     Dosage: RECEIVED FLAMSA-RIC REGIMEN
     Route: 065
  5. FLUDARABINE [Suspect]
     Active Substance: FLUDARABINE PHOSPHATE
     Indication: Chronic myelomonocytic leukaemia
     Dosage: RECEIVED FLAMSA-RIC REGIMEN
     Route: 065
  6. THYMOCYTE IMMUNE GLOBULIN NOS [Suspect]
     Active Substance: THYMOCYTE IMMUNE GLOBULIN NOS
     Indication: Chronic myelomonocytic leukaemia
     Dosage: RECEIVED FLAMSA-RIC REGIMEN
     Route: 065
  7. AMSACRINE [Suspect]
     Active Substance: AMSACRINE
     Indication: Chronic myelomonocytic leukaemia
     Dosage: RECEIVED FLAMSA-RIC REGIMEN
     Route: 065
  8. FOSCARNET SODIUM [Suspect]
     Active Substance: FOSCARNET SODIUM
     Indication: Oral herpes
     Dosage: UNK
     Route: 065

REACTIONS (4)
  - Renal impairment [Fatal]
  - Herpes simplex [Recovered/Resolved]
  - Drug resistance [Unknown]
  - Drug ineffective [Unknown]
